FAERS Safety Report 8244437-1 (Version None)
Quarter: 2012Q1

REPORT INFORMATION
  Report Type: 
  Country: None (occurrence: None)
  Receive Date: 20120329
  Receipt Date: 20120319
  Transmission Date: 20120608
  Serious: No
  Sender: FDA-Public Use
  Company Number: CN-BAUSCH-2012BL002025

PATIENT
  Age: 46 Year
  Sex: Female

DRUGS (1)
  1. PREDNISOLONE [Suspect]
     Indication: VOGT-KOYANAGI-HARADA SYNDROME
     Route: 048
     Dates: start: 20080717

REACTIONS (1)
  - RETINAL DETACHMENT [None]
